FAERS Safety Report 5090718-2 (Version None)
Quarter: 2006Q3

REPORT INFORMATION
  Report Type: 
  Country: None (occurrence: None)
  Receive Date: 20060823
  Receipt Date: 20060809
  Transmission Date: 20061208
  Serious: Yes (Hospitalization)
  Sender: FDA-Public Use
  Company Number: 14394

PATIENT
  Age: 47 Year
  Sex: Male

DRUGS (6)
  1. CARBOPLATIN [Suspect]
  2. PACLITAXEL [Suspect]
     Dates: start: 20060215
  3. DMXAA [Suspect]
     Indication: NON-SMALL CELL LUNG CANCER
     Dosage: 3000 MG IV
     Route: 042
     Dates: start: 20060215, end: 20060607
  4. PREDNISONE TAB [Concomitant]
  5. OMEPRAZOLE [Concomitant]
  6. DEXAMETHASONE TAB [Concomitant]

REACTIONS (9)
  - ABDOMINAL DISCOMFORT [None]
  - ABDOMINAL PAIN [None]
  - ABDOMINAL TENDERNESS [None]
  - ASTHENIA [None]
  - BLOOD POTASSIUM INCREASED [None]
  - BLOOD SODIUM DECREASED [None]
  - DIARRHOEA [None]
  - DIZZINESS [None]
  - DYSPNOEA [None]
